FAERS Safety Report 15570842 (Version 3)
Quarter: 2023Q4

REPORT INFORMATION
  Report Type: Spontaneous
  Country: RS (occurrence: RS)
  Receive Date: 20181031
  Receipt Date: 20231030
  Transmission Date: 20240110
  Serious: Yes (Hospitalization, Other)
  Sender: FDA-Public Use
  Company Number: RS-MACLEODS PHARMACEUTICALS US LTD-MAC2018018136

PATIENT

DRUGS (6)
  1. LEVOFLOXACIN [Interacting]
     Active Substance: LEVOFLOXACIN
     Indication: Urinary tract infection
     Dosage: 500 MILLIGRAM, QD ON FIRST DAY (OVERDOSE), EVERY 1 DAY
     Route: 042
  2. METRONIDAZOLE [Interacting]
     Active Substance: METRONIDAZOLE
     Indication: Enterocolitis
     Dosage: 400 MILLIGRAM, TID, EVERY 8 HOUR
     Route: 065
  3. RANITIDINE [Concomitant]
     Active Substance: RANITIDINE
     Indication: Product used for unknown indication
     Dosage: 100 MILLIGRAM, QD
     Route: 065
  4. SACCHAROMYCES CEREVISIAE [Concomitant]
     Active Substance: SACCHAROMYCES CEREVISIAE
     Indication: Clostridium difficile infection
     Dosage: UNK
     Route: 065
  5. CALCIUM CARBONATE [Concomitant]
     Active Substance: CALCIUM CARBONATE
     Indication: Product used for unknown indication
     Dosage: 2 GRAM, QD
     Route: 065
  6. CARVEDILOL [Concomitant]
     Active Substance: CARVEDILOL
     Indication: Product used for unknown indication
     Dosage: 12.5 MILLIGRAM, QD
     Route: 065

REACTIONS (8)
  - Neurotoxicity [Recovered/Resolved]
  - Delirium [Recovered/Resolved]
  - Disorientation [Recovered/Resolved]
  - Organic brain syndrome [Recovered/Resolved]
  - Psychotic disorder [Recovered/Resolved]
  - Confusional state [Recovered/Resolved]
  - Overdose [Recovered/Resolved]
  - Drug interaction [Recovered/Resolved]
